FAERS Safety Report 10401976 (Version 2)
Quarter: 2014Q3

REPORT INFORMATION
  Report Type: Report from Study
  Country: US (occurrence: US)
  Receive Date: 20140822
  Receipt Date: 20140822
  Transmission Date: 20150326
  Serious: Yes (Death, Hospitalization, Other)
  Sender: FDA-Public Use
  Company Number: US-ASTELLAS-2014US010236

PATIENT
  Age: 84 Year
  Sex: Female

DRUGS (4)
  1. ERLOTINIB [Suspect]
     Active Substance: ERLOTINIB
     Indication: LUNG CARCINOMA CELL TYPE UNSPECIFIED STAGE 0
     Route: 048
     Dates: start: 20100401, end: 20120616
  2. ERLOTINIB [Suspect]
     Active Substance: ERLOTINIB
     Indication: DIFFUSE LARGE B-CELL LYMPHOMA
  3. AVASTIN [Suspect]
     Active Substance: BEVACIZUMAB
     Indication: LUNG NEOPLASM MALIGNANT
     Dosage: UNK UNK, UNKNOWN FREQ.
     Route: 065
  4. ERLOTINIB [Suspect]
     Active Substance: ERLOTINIB
     Indication: NON-HODGKIN^S LYMPHOMA

REACTIONS (2)
  - Non-small cell lung cancer [Fatal]
  - Pleural effusion [Fatal]

NARRATIVE: CASE EVENT DATE: 20120615
